FAERS Safety Report 5386521-6 (Version None)
Quarter: 2007Q3

REPORT INFORMATION
  Report Type: 
  Country: None (occurrence: None)
  Receive Date: 20070710
  Receipt Date: 20070419
  Transmission Date: 20080115
  Serious: Yes (Hospitalization)
  Sender: FDA-Public Use
  Company Number: 8024970

PATIENT
  Age: 22 Year
  Sex: Female

DRUGS (8)
  1. LEVETIRACETAM [Suspect]
     Dates: start: 20020819
  2. VENLAFAXINE HCL [Concomitant]
  3. LAMOTRIGINE [Concomitant]
  4. NAPROXEN [Concomitant]
  5. CYCLOBENZAPRINE HCL [Concomitant]
  6. NARATRIPTAN HCL [Concomitant]
  7. PROMETHAZINE [Concomitant]
  8. TETRACYCLINE [Concomitant]

REACTIONS (4)
  - MAJOR DEPRESSION [None]
  - NEUROSIS [None]
  - SUICIDE ATTEMPT [None]
  - THERAPEUTIC AGENT TOXICITY [None]
